FAERS Safety Report 10028662 (Version 1)
Quarter: 2014Q1

REPORT INFORMATION
  Report Type: Spontaneous
  Country: IT (occurrence: IT)
  Receive Date: 20140321
  Receipt Date: 20140321
  Transmission Date: 20141002
  Serious: Yes (Other)
  Sender: FDA-Public Use
  Company Number: PHHY2014IT032008

PATIENT
  Age: 22 Year
  Sex: Male

DRUGS (2)
  1. OLANZAPINE [Suspect]
     Dosage: 15 MG, PER DAY
  2. TOPIRAMATE [Interacting]
     Dosage: 300 MG, PER DAY

REACTIONS (6)
  - Fibrosis [Unknown]
  - Drug interaction [Unknown]
  - Erectile dysfunction [Unknown]
  - Priapism [Unknown]
  - Erection increased [Unknown]
  - Painful erection [Unknown]
